FAERS Safety Report 25157177 (Version 1)
Quarter: 2025Q2

REPORT INFORMATION
  Report Type: Spontaneous
  Country: US (occurrence: US)
  Receive Date: 20250403
  Receipt Date: 20250403
  Transmission Date: 20250716
  Serious: No
  Sender: PFIZER
  Company Number: US-PFIZER INC-202400300440

PATIENT
  Age: 82 Year
  Sex: Female

DRUGS (6)
  1. MEKTOVI [Suspect]
     Active Substance: BINIMETINIB
     Dosage: 45 MG, 2X/DAY (TAKE THREE TABLETS IN THE MORNING AND THREE TABLETS BEFORE BEDTIME)
     Route: 048
  2. BRAFTOVI [Suspect]
     Active Substance: ENCORAFENIB
     Dosage: 450 MG, 1X/DAY (TAKE SIX CAPSULES IN THE MORNING)
     Route: 048
  3. PROVENTIL [Concomitant]
     Active Substance: ALBUTEROL
  4. ALBUTEROL [Concomitant]
     Active Substance: ALBUTEROL
  5. LIPITOR [Concomitant]
     Active Substance: ATORVASTATIN CALCIUM
  6. SYNTHROID [Concomitant]
     Active Substance: LEVOTHYROXINE SODIUM

REACTIONS (1)
  - Migraine [Unknown]
